FAERS Safety Report 14519935 (Version 1)
Quarter: 2018Q1

REPORT INFORMATION
  Report Type: Spontaneous
  Country: US (occurrence: US)
  Receive Date: 20180210
  Receipt Date: 20180210
  Transmission Date: 20180509
  Serious: No
  Sender: FDA-Public Use
  Company Number: None

PATIENT
  Age: 43 Year
  Sex: Female

DRUGS (1)
  1. COSENTYX [Suspect]
     Active Substance: SECUKINUMAB

REACTIONS (5)
  - Hypersensitivity [None]
  - Gastrointestinal pain [None]
  - Therapy cessation [None]
  - Urinary tract disorder [None]
  - Migraine [None]

NARRATIVE: CASE EVENT DATE: 20180209
